FAERS Safety Report 4937182-9 (Version None)
Quarter: 2006Q1

REPORT INFORMATION
  Report Type: 
  Country: None (occurrence: None)
  Receive Date: 20060307
  Receipt Date: 20060307
  Transmission Date: 20060701
  Serious: Yes (Other)
  Sender: FDA-Public Use
  Company Number: None

PATIENT
  Sex: Male
  Weight: 68.0396 kg

DRUGS (1)
  1. OXYCODONE ER [Suspect]
     Indication: BACK PAIN
     Dosage: 10MG BID  P.O.
     Route: 048
     Dates: start: 20060211, end: 20060302

REACTIONS (3)
  - DRUG INEFFECTIVE [None]
  - PSYCHOMOTOR HYPERACTIVITY [None]
  - THERAPEUTIC RESPONSE UNEXPECTED WITH DRUG SUBSTITUTION [None]
